FAERS Safety Report 8317110-9 (Version None)
Quarter: 2012Q2

REPORT INFORMATION
  Report Type: 
  Country: None (occurrence: None)
  Receive Date: 20120425
  Receipt Date: 20120412
  Transmission Date: 20120825
  Serious: Yes (Death, Life-Threatening, Hospitalization, Other)
  Sender: FDA-Public Use
  Company Number: AUR-APL-2012-01819

PATIENT
  Age: 65 Year
  Sex: Male
  Weight: 102 kg

DRUGS (10)
  1. DOXYCYCLINE [Suspect]
     Indication: LOWER RESPIRATORY TRACT INFECTION
     Dosage: 200 MG (100 MG, 2 IN 1 D), ORAL
     Route: 048
     Dates: start: 20120327, end: 20120403
  2. OMEPRAZOLE [Concomitant]
  3. CANDESARTAN CILEXETIL [Suspect]
     Indication: HYPERTENSION
     Dosage: 16 MG (8 MG, 2 IN 1 D), ORAL
     Route: 048
     Dates: start: 20120322, end: 20120331
  4. FUROSEMIDE [Concomitant]
  5. ACETAMINOPHEN [Concomitant]
  6. ATENOLOL [Concomitant]
  7. METFORMIN HCL [Concomitant]
  8. GABAPENTIN [Suspect]
     Indication: NEURALGIA
     Dosage: 1.5 DOSAGE FORMS (1 DOSAGE FORMS, 3 IN 2 D), ORAL
     Route: 048
     Dates: start: 20120322, end: 20120331
  9. FELODIPINE [Suspect]
     Indication: HYPERTENSION
     Dosage: 5 MG (5 MG, 1 IN 1 D), ORAL
     Route: 048
     Dates: start: 20120325, end: 20120331
  10. HUMALOG MIX 25 (HUMALOG MIX /01500801/) [Concomitant]

REACTIONS (2)
  - RENAL FAILURE ACUTE [None]
  - HYPERKALAEMIA [None]
